FAERS Safety Report 14772797 (Version 1)
Quarter: 2018Q2

REPORT INFORMATION
  Report Type: Spontaneous
  Country: GB (occurrence: GB)
  Receive Date: 20180418
  Receipt Date: 20180418
  Transmission Date: 20180711
  Serious: Yes (Hospitalization)
  Sender: FDA-Public Use
  Company Number: GB-TEVA-2018-GB-882226

PATIENT
  Age: 87 Year
  Sex: Female

DRUGS (11)
  1. BUTRANS [Concomitant]
     Active Substance: BUPRENORPHINE
     Dosage: 5MCG/HOUR PATCH
     Route: 062
  2. DEXAMETHASONE. [Concomitant]
     Active Substance: DEXAMETHASONE
     Dosage: 8 MILLIGRAM DAILY;
     Route: 065
     Dates: start: 20170805, end: 20170808
  3. LATANOPROST. [Concomitant]
     Active Substance: LATANOPROST
     Dosage: 1 GTT DAILY; 50MCG/ML - NIGHT
     Route: 065
  4. ORAMORPH [Concomitant]
     Active Substance: MORPHINE SULFATE
     Dosage: 10MG/5ML 2.5-5MG 2-4HOURLY
  5. COLECALCIFEROL [Concomitant]
     Active Substance: CHOLECALCIFEROL
     Dosage: 800 IU (INTERNATIONAL UNIT) DAILY;
     Route: 065
  6. LIDOCAINE. [Concomitant]
     Active Substance: LIDOCAINE
     Dosage: 1 DOSAGE FORMS DAILY;
     Route: 062
  7. RANITIDINE. [Concomitant]
     Active Substance: RANITIDINE
  8. MANEVAC [Concomitant]
     Dosage: 5-10ML ONCE NIGHTLY
  9. CLOPIDOGREL [Suspect]
     Active Substance: CLOPIDOGREL BISULFATE
     Dosage: 75 MILLIGRAM DAILY;
     Route: 065
  10. PARACETAMOL [Concomitant]
     Active Substance: ACETAMINOPHEN
     Dosage: 4 GRAM DAILY;
     Route: 065
  11. PROPRANOLOL [Concomitant]
     Active Substance: PROPRANOLOL HYDROCHLORIDE

REACTIONS (1)
  - Subdural haemorrhage [Recovered/Resolved]

NARRATIVE: CASE EVENT DATE: 20170809
